FAERS Safety Report 19495038 (Version 1)
Quarter: 2021Q3

REPORT INFORMATION
  Report Type: Spontaneous
  Country: NL (occurrence: NL)
  Receive Date: 20210705
  Receipt Date: 20210705
  Transmission Date: 20211014
  Serious: Yes (Other)
  Sender: FDA-Public Use
  Company Number: NL-AUROBINDO-AUR-APL-2021-027756

PATIENT
  Age: 62 Year
  Sex: Female
  Weight: 65 kg

DRUGS (8)
  1. ATORVASTATIN FILM COATED TABLETS 80MG [Suspect]
     Active Substance: ATORVASTATIN
     Indication: PRODUCT USED FOR UNKNOWN INDICATION
     Dosage: UNK (1 PER DAY)
     Dates: start: 20210301
  2. CLOPIDOGREL [Suspect]
     Active Substance: CLOPIDOGREL BISULFATE
     Indication: PRODUCT USED FOR UNKNOWN INDICATION
     Dosage: UNK (1 PER DAY)
     Route: 065
     Dates: start: 202103
  3. METOPROLOL 25MG  PROLONGED?RELEASE TABLET [Suspect]
     Active Substance: METOPROLOL
     Indication: PRODUCT USED FOR UNKNOWN INDICATION
     Dosage: UNK (1 PILL PER DAY)
     Route: 065
     Dates: start: 20210301
  4. ACETYLSALICYLIC ACID 80 MG TABLETS [Suspect]
     Active Substance: ASPIRIN
     Indication: PRODUCT USED FOR UNKNOWN INDICATION
     Dosage: UNK (1 PER DAY)
     Route: 065
     Dates: start: 20210301
  5. LISINOPRIL  TABLETS 5MG [Suspect]
     Active Substance: LISINOPRIL
     Indication: PRODUCT USED FOR UNKNOWN INDICATION
     Dosage: UNK (HALF A TABLET PER DAY)
     Route: 065
     Dates: start: 20210301
  6. SERTRALINE FILM?COATED TABLETS 50 MG [Suspect]
     Active Substance: SERTRALINE HYDROCHLORIDE
     Indication: PRODUCT USED FOR UNKNOWN INDICATION
     Dosage: UNK (1 PER DAY)
     Route: 065
     Dates: start: 2020
  7. ASTRAZENECA COVID?19 VACCINE [Suspect]
     Active Substance: AZD-1222
     Indication: COVID-19 IMMUNISATION
     Dosage: UNK
     Route: 065
     Dates: start: 20210511
  8. PANTOPRAZOL 20MG GASTRO?RESISTANT TABLETS [Suspect]
     Active Substance: PANTOPRAZOLE SODIUM
     Indication: PRODUCT USED FOR UNKNOWN INDICATION
     Dosage: UNK (1 PER DAY)
     Route: 065
     Dates: start: 20210223

REACTIONS (3)
  - Vomiting [Recovered/Resolved]
  - Nausea [Recovered/Resolved]
  - Syncope [Recovered/Resolved]

NARRATIVE: CASE EVENT DATE: 20210512
